FAERS Safety Report 17656883 (Version 3)
Quarter: 2021Q1

REPORT INFORMATION
  Report Type: Spontaneous
  Country: CA (occurrence: CA)
  Receive Date: 20200410
  Receipt Date: 20210104
  Transmission Date: 20210419
  Serious: Yes (Other)
  Sender: FDA-Public Use
  Company Number: CA-SAMSUNG BIOEPIS-SB-2020-11492

PATIENT
  Age: 63 Year
  Sex: Male
  Weight: 73 kg

DRUGS (14)
  1. HYDROCORTISONE. [Concomitant]
     Active Substance: HYDROCORTISONE
     Indication: PREMEDICATION
     Route: 042
  2. CALCIUM [Concomitant]
     Active Substance: CALCIUM
     Route: 065
  3. PLAQUENIL [Concomitant]
     Active Substance: HYDROXYCHLOROQUINE SULFATE
     Route: 065
  4. FOLIC ACID. [Concomitant]
     Active Substance: FOLIC ACID
     Indication: PRODUCT USED FOR UNKNOWN INDICATION
     Route: 065
  5. DIMENHYDRINATE. [Concomitant]
     Active Substance: DIMENHYDRINATE
     Indication: PREMEDICATION
     Route: 042
  6. METHOTREXATE. [Concomitant]
     Active Substance: METHOTREXATE
     Indication: PRODUCT USED FOR UNKNOWN INDICATION
     Route: 065
  7. PANTOLOC [Concomitant]
     Active Substance: PANTOPRAZOLE SODIUM
     Indication: PRODUCT USED FOR UNKNOWN INDICATION
     Dosage: TABLET (ENTERIC COATED)
     Route: 065
  8. PREDNISONE. [Concomitant]
     Active Substance: PREDNISONE
     Indication: PRODUCT USED FOR UNKNOWN INDICATION
     Dosage: UNKNOWN
     Route: 048
  9. INFLIXIMAB [Suspect]
     Active Substance: INFLIXIMAB
     Indication: SARCOIDOSIS
     Route: 042
  10. ERGOCALCIFEROL. [Concomitant]
     Active Substance: ERGOCALCIFEROL
     Indication: PRODUCT USED FOR UNKNOWN INDICATION
     Route: 065
  11. PREDNISONE. [Concomitant]
     Active Substance: PREDNISONE
     Dosage: UNKNOWN
     Route: 065
  12. CALCIUM [Concomitant]
     Active Substance: CALCIUM
     Indication: PRODUCT USED FOR UNKNOWN INDICATION
     Route: 065
  13. METHYLPREDNISOLONE. [Concomitant]
     Active Substance: METHYLPREDNISOLONE
     Indication: PREMEDICATION
     Route: 042
  14. PLAQUENIL [Concomitant]
     Active Substance: HYDROXYCHLOROQUINE SULFATE
     Indication: PRODUCT USED FOR UNKNOWN INDICATION
     Route: 065

REACTIONS (23)
  - Chills [Recovered/Resolved]
  - Dyspnoea [Recovered/Resolved]
  - Weight increased [Recovered/Resolved]
  - Treatment failure [Recovered/Resolved]
  - Therapeutic product effect decreased [Recovered/Resolved]
  - Off label use [Recovered/Resolved]
  - Inappropriate schedule of product administration [Recovered/Resolved]
  - Impaired healing [Recovered/Resolved]
  - Pneumonia [Recovered/Resolved]
  - Skin laceration [Recovered/Resolved]
  - Erythema [Recovered/Resolved]
  - Peripheral coldness [Recovered/Resolved]
  - Rash [Recovered/Resolved]
  - Vomiting [Recovered/Resolved]
  - Dry skin [Recovered/Resolved]
  - Asthma [Recovered/Resolved]
  - Blood pressure fluctuation [Recovered/Resolved]
  - Product use in unapproved indication [Recovered/Resolved]
  - Body temperature decreased [Recovered/Resolved]
  - Flushing [Recovered/Resolved]
  - Dizziness [Recovered/Resolved]
  - Heart rate irregular [Recovered/Resolved]
  - Weight decreased [Recovered/Resolved]
